FAERS Safety Report 12746651 (Version 1)
Quarter: 2016Q3

REPORT INFORMATION
  Report Type: Spontaneous
  Country: FR (occurrence: FR)
  Receive Date: 20160915
  Receipt Date: 20160915
  Transmission Date: 20161109
  Serious: Yes (Hospitalization)
  Sender: FDA-Public Use
  Company Number: FR-SA-2016SA164916

PATIENT
  Age: 70 Year
  Sex: Female

DRUGS (14)
  1. LOVENOX [Concomitant]
     Active Substance: ENOXAPARIN SODIUM
  2. RIFADINE [Suspect]
     Active Substance: RIFAMPIN
     Indication: INFECTION
     Dosage: DOSE: 900 MG DAILY
     Route: 048
     Dates: start: 20160712, end: 20160812
  3. LASILIX [Concomitant]
     Active Substance: FUROSEMIDE
     Dosage: 40MG
  4. KALEROID [Concomitant]
     Active Substance: POTASSIUM CHLORIDE
     Dosage: 1000MG
  5. LAMALINE [Concomitant]
     Active Substance: ACETAMINOPHEN\CAFFEINE\OPIUM
     Dosage: 4 TIMES DAILY IF PAIN
  6. TAHOR [Concomitant]
     Active Substance: ATORVASTATIN CALCIUM
  7. MINOCYCLINE [Concomitant]
     Active Substance: MINOCYCLINE\MINOCYCLINE HYDROCHLORIDE
     Dates: start: 20160712, end: 20160822
  8. CLAFORAN [Concomitant]
     Active Substance: CEFOTAXIME SODIUM
  9. JANUVIA [Concomitant]
     Active Substance: SITAGLIPTIN PHOSPHATE
     Dosage: 100 MG
  10. ECONAZOLE [Concomitant]
     Active Substance: ECONAZOLE
     Dosage: ROUTE, LOCAL?ON FOLDS
  11. LEVOTHYROX [Concomitant]
     Active Substance: LEVOTHYROXINE
  12. CUBICIN [Concomitant]
     Active Substance: DAPTOMYCIN
     Dates: end: 20160705
  13. SERESTA [Concomitant]
     Active Substance: OXAZEPAM
  14. FUNGIZONE [Concomitant]
     Active Substance: AMPHOTERICIN B
     Dosage: ROUTE: LOCAL?MOUTHWASH

REACTIONS (3)
  - Anaemia [Recovering/Resolving]
  - Hepatocellular injury [Recovered/Resolved]
  - Thrombocytopenia [Recovering/Resolving]

NARRATIVE: CASE EVENT DATE: 20160812
